FAERS Safety Report 24040452 (Version 1)
Quarter: 2024Q3

REPORT INFORMATION
  Report Type: Spontaneous
  Country: RO (occurrence: RO)
  Receive Date: 20240702
  Receipt Date: 20240702
  Transmission Date: 20241016
  Serious: Yes (Other)
  Sender: NOVARTIS
  Company Number: RO-002147023-NVSC2024RO135360

PATIENT
  Age: 2 Year
  Sex: Female

DRUGS (1)
  1. ELTROMBOPAG OLAMINE [Suspect]
     Active Substance: ELTROMBOPAG OLAMINE
     Indication: Immune thrombocytopenia
     Dosage: UNK
     Route: 065
     Dates: start: 2021, end: 202303

REACTIONS (3)
  - Thrombocytosis [Unknown]
  - Headache [Unknown]
  - Photopsia [Unknown]

NARRATIVE: CASE EVENT DATE: 20230301
